FAERS Safety Report 10435655 (Version 3)
Quarter: 2015Q3

REPORT INFORMATION
  Report Type: Spontaneous
  Country: US (occurrence: US)
  Receive Date: 20140908
  Receipt Date: 20150914
  Transmission Date: 20151125
  Serious: No
  Sender: FDA-Public Use
  Company Number: US-TEVA-453646USA

PATIENT
  Sex: Female

DRUGS (1)
  1. GLYBURIDE. [Suspect]
     Active Substance: GLYBURIDE
     Indication: TYPE 2 DIABETES MELLITUS
     Dates: start: 200502

REACTIONS (12)
  - Malaise [Unknown]
  - Muscular weakness [Unknown]
  - Dizziness [Unknown]
  - Drug ineffective [Unknown]
  - Weight increased [Unknown]
  - Vision blurred [Unknown]
  - Feeling abnormal [Unknown]
  - Balance disorder [Unknown]
  - Burning sensation [Unknown]
  - Confusional state [Unknown]
  - Blood glucose increased [Unknown]
  - Gait disturbance [Unknown]
